FAERS Safety Report 9931076 (Version 1)
Quarter: 2014Q1

REPORT INFORMATION
  Report Type: Report from Study
  Country: US (occurrence: US)
  Receive Date: 20140227
  Receipt Date: 20140227
  Transmission Date: 20141002
  Serious: Yes (Other)
  Sender: FDA-Public Use
  Company Number: PHEH2014US003902

PATIENT
  Sex: Male

DRUGS (2)
  1. MYFORTIC [Suspect]
     Dosage: UNK UKN, UNK
  2. PROGRAF [Suspect]
     Dosage: UNK UKN, UNK

REACTIONS (4)
  - Hypoacusis [Unknown]
  - Condition aggravated [Unknown]
  - Deafness [Unknown]
  - Skin cancer [Unknown]
